FAERS Safety Report 7138659-0 (Version None)
Quarter: 2010Q4

REPORT INFORMATION
  Report Type: 
  Country: None (occurrence: None)
  Receive Date: 20101201
  Receipt Date: 20101201
  Transmission Date: 20110411
  Serious: Yes (Disabling)
  Sender: FDA-Public Use
  Company Number: None

PATIENT
  Age: 42 Year
  Sex: Female
  Weight: 60 kg

DRUGS (1)
  1. EBETAXEL 150MG/25ML EBEWE ARZNEIMITTEL GESMBH [Suspect]
     Indication: CHEMOTHERAPY
     Dosage: 270MG IV
     Route: 042

REACTIONS (4)
  - HYPOTENSION [None]
  - NAUSEA [None]
  - VERTIGO [None]
  - VOMITING [None]
